FAERS Safety Report 8268423-0 (Version None)
Quarter: 2012Q1

REPORT INFORMATION
  Report Type: 
  Country: None (occurrence: None)
  Receive Date: 20120327
  Receipt Date: 20100219
  Transmission Date: 20120608
  Serious: Yes (Other)
  Sender: FDA-Public Use
  Company Number: PHHY2010US03305

PATIENT
  Age: 68 Year
  Sex: Female

DRUGS (3)
  1. GLEEVEC [Suspect]
     Indication: CHRONIC MYELOID LEUKAEMIA
     Dosage: 400 MG, QD
     Dates: start: 20080501
  2. PRILOSEC [Concomitant]
  3. ASPIRIN [Suspect]
     Dosage: 91 MG, UNK

REACTIONS (5)
  - ABDOMINAL DISCOMFORT [None]
  - HAEMATEMESIS [None]
  - HAEMATOCRIT DECREASED [None]
  - GASTRIC HAEMORRHAGE [None]
  - HAEMOGLOBIN DECREASED [None]
